FAERS Safety Report 8169198-6 (Version None)
Quarter: 2012Q1

REPORT INFORMATION
  Report Type: 
  Country: None (occurrence: None)
  Receive Date: 20120227
  Receipt Date: 20120221
  Transmission Date: 20120608
  Serious: Yes (Life-Threatening)
  Sender: FDA-Public Use
  Company Number: CA-ASTRAZENECA-2011SE35238

PATIENT
  Age: 86 Year
  Sex: Male

DRUGS (9)
  1. LASIX [Concomitant]
  2. ASPIRIN [Concomitant]
  3. NEXIUM [Suspect]
     Route: 048
     Dates: start: 20090721
  4. ATACAND [Concomitant]
     Route: 048
  5. POTASSIUM CHLORIDE [Concomitant]
  6. METOPROLOL [Concomitant]
  7. NORVASC [Concomitant]
  8. IMDUR [Concomitant]
  9. FLOMAX [Concomitant]

REACTIONS (2)
  - SUICIDE ATTEMPT [None]
  - SUICIDAL IDEATION [None]
